FAERS Safety Report 7531888-3 (Version None)
Quarter: 2011Q2

REPORT INFORMATION
  Report Type: 
  Country: None (occurrence: None)
  Receive Date: 20110608
  Receipt Date: 20110526
  Transmission Date: 20111010
  Serious: Yes (Hospitalization, Other)
  Sender: FDA-Public Use
  Company Number: US-BAYER-2011-028471

PATIENT
  Age: 23 Year
  Sex: Female

DRUGS (1)
  1. MIRENA [Suspect]
     Indication: CONTRACEPTION
     Dosage: 20 MCG/24HR, CONT
     Route: 015
     Dates: start: 20101101, end: 20110329

REACTIONS (6)
  - DEVICE BREAKAGE [None]
  - PREGNANCY [None]
  - NAUSEA [None]
  - DEVICE DISLOCATION [None]
  - UTERINE PERFORATION [None]
  - VAGINAL HAEMORRHAGE [None]
